FAERS Safety Report 6911436-9 (Version None)
Quarter: 2010Q3

REPORT INFORMATION
  Report Type: 
  Country: None (occurrence: None)
  Receive Date: 20100806
  Receipt Date: 20100729
  Transmission Date: 20110219
  Serious: Yes (Hospitalization)
  Sender: FDA-Public Use
  Company Number: GXKR2010IT08550

PATIENT
  Age: 50 Year
  Sex: Female

DRUGS (4)
  1. RIFAMPIN [Suspect]
     Indication: LYMPH NODE TUBERCULOSIS
     Route: 065
  2. ISONIAZID [Concomitant]
     Indication: LYMPH NODE TUBERCULOSIS
     Route: 065
  3. PYRAZINAMIDE [Concomitant]
     Indication: LYMPH NODE TUBERCULOSIS
     Route: 065
  4. ETHAMBUTOL HYDROCHLORIDE [Concomitant]
     Indication: LYMPH NODE TUBERCULOSIS
     Route: 065

REACTIONS (8)
  - ADRENOCORTICAL INSUFFICIENCY ACUTE [None]
  - ANAEMIA [None]
  - CONFUSIONAL STATE [None]
  - EMPTY SELLA SYNDROME [None]
  - HYPONATRAEMIA [None]
  - HYPOTENSION [None]
  - SECONDARY HYPOTHYROIDISM [None]
  - SYNCOPE [None]
